FAERS Safety Report 22322415 (Version 3)
Quarter: 2023Q2

REPORT INFORMATION
  Report Type: Report from Study
  Country: JP (occurrence: JP)
  Receive Date: 20230516
  Receipt Date: 20230606
  Transmission Date: 20230721
  Serious: Yes (Hospitalization)
  Sender: FDA-Public Use
  Company Number: JP-REGENERON PHARMACEUTICALS, INC.-2023-064483

PATIENT
  Age: 73 Year
  Sex: Female

DRUGS (20)
  1. CEMIPLIMAB [Suspect]
     Active Substance: CEMIPLIMAB
     Indication: Lung squamous cell carcinoma stage IV
     Dosage: 350 MG, Q3W
     Route: 042
     Dates: start: 20230131, end: 20230424
  2. CARBOPLATIN [Suspect]
     Active Substance: CARBOPLATIN
     Indication: Lung squamous cell carcinoma stage IV
     Dosage: AUC OF 5 OR 6 MG/ML/MINUTE
     Route: 042
     Dates: start: 20230131, end: 20230403
  3. PACLITAXEL [Suspect]
     Active Substance: PACLITAXEL
     Indication: Lung squamous cell carcinoma stage IV
     Dosage: 200 MG/M2, Q3W
     Route: 042
     Dates: start: 20230131, end: 20230403
  4. TOCOPHEROL TEVA [Concomitant]
     Indication: Hypertension
     Dosage: 600 MG, TID
     Route: 048
     Dates: start: 202204, end: 20230510
  5. TEPRENONE [Concomitant]
     Active Substance: TEPRENONE
     Indication: Gastritis prophylaxis
     Dosage: 150 MG, TID
     Route: 048
     Dates: start: 202204, end: 20230510
  6. MAGNESIUM OXIDE [Concomitant]
     Active Substance: MAGNESIUM OXIDE
     Indication: Constipation
     Dosage: 330 MG, AS NECESSARY
     Route: 048
     Dates: start: 202204, end: 20230510
  7. SODIUM GUALENATE MONOHYDRATE [Concomitant]
     Active Substance: SODIUM GUALENATE MONOHYDRATE
     Indication: Stomatitis
     Dosage: 4 %, TID
     Route: 061
     Dates: start: 20230105, end: 20230510
  8. SENNOSIDES A AND B [Concomitant]
     Active Substance: SENNOSIDES A AND B
     Indication: Constipation
     Dosage: 24 MG, AS NECESSARY
     Route: 048
     Dates: start: 20230202, end: 20230510
  9. LINACLOTIDE [Concomitant]
     Active Substance: LINACLOTIDE
     Indication: Constipation
     Dosage: 0.5 MG, QD
     Route: 048
     Dates: start: 20230203, end: 20230510
  10. NAPROXEN [Concomitant]
     Active Substance: NAPROXEN
     Indication: Back pain
     Dosage: 600 MG, TID
     Route: 048
     Dates: start: 20230207, end: 20230510
  11. VONOPRAZAN FUMARATE [Concomitant]
     Active Substance: VONOPRAZAN FUMARATE
     Indication: Gastritis prophylaxis
     Dosage: 20 MG, QD
     Route: 048
     Dates: start: 20230207, end: 20230510
  12. NIFEDIPINE [Concomitant]
     Active Substance: NIFEDIPINE
     Indication: Hypertension
     Dosage: 10 MG, QD
     Route: 048
     Dates: start: 20230214, end: 20230510
  13. DULOXETINE HYDROCHLORIDE [Concomitant]
     Active Substance: DULOXETINE HYDROCHLORIDE
     Indication: Peripheral sensory neuropathy
     Dosage: 20 MG, QD
     Route: 048
     Dates: start: 20230314, end: 20230423
  14. DULOXETINE HYDROCHLORIDE [Concomitant]
     Active Substance: DULOXETINE HYDROCHLORIDE
     Dosage: 40 MG, QD
     Route: 048
     Dates: start: 20230424, end: 20230510
  15. DIFLUCORTOLONE VALERATE [Concomitant]
     Active Substance: DIFLUCORTOLONE VALERATE
     Indication: Infusion site extravasation
     Dosage: APPLICATION, BID
     Route: 061
     Dates: start: 20230313, end: 20230510
  16. METHYLCOBALAMIN [Concomitant]
     Active Substance: METHYLCOBALAMIN
     Indication: Back pain
     Dosage: 1500 UG, TID
     Route: 048
     Dates: start: 20230130, end: 20230510
  17. PREGABALIN [Concomitant]
     Active Substance: PREGABALIN
     Indication: Back pain
     Dosage: 100 MG, BID
     Route: 048
     Dates: start: 20230403, end: 20230510
  18. ELDECALCITOL [Concomitant]
     Active Substance: ELDECALCITOL
     Indication: Osteoporosis
     Dosage: 0.75 UG, QD
     Route: 048
     Dates: start: 20230214, end: 20230510
  19. CANDESARTAN CILEXETIL [Concomitant]
     Active Substance: CANDESARTAN CILEXETIL
     Indication: Hypertension
     Dosage: 4 MG, QD
     Route: 048
     Dates: start: 20230424, end: 20230510
  20. HEPARINOID [Concomitant]
     Indication: Moisture-associated skin damage
     Dosage: APPLICATION, AS NECESSARY
     Route: 061
     Dates: start: 20230424, end: 20230510

REACTIONS (3)
  - Pneumonia [Recovered/Resolved]
  - Adrenal insufficiency [Not Recovered/Not Resolved]
  - Muscular weakness [Recovered/Resolved]

NARRATIVE: CASE EVENT DATE: 20230509
